FAERS Safety Report 8795253 (Version 1)
Quarter: 2012Q4

REPORT INFORMATION
  Report Type: Report from Study
  Country: BR (occurrence: BR)
  Receive Date: 20120917
  Receipt Date: 20120917
  Transmission Date: 20130627
  Serious: Yes (Hospitalization)
  Sender: FDA-Public Use
  Company Number: BR-ROCHE-1118440

PATIENT
  Sex: Female
  Weight: 64 kg

DRUGS (3)
  1. ROACTEMRA [Suspect]
     Indication: PRODUCT USED FOR UNKNOWN INDICATION
     Route: 065
     Dates: start: 20110301, end: 20120531
  2. PRELONE [Concomitant]
     Route: 065
  3. ARAVA [Concomitant]
     Route: 065

REACTIONS (2)
  - Drug ineffective [Unknown]
  - Osteoarthritis [Unknown]
